FAERS Safety Report 9467094 (Version 1)
Quarter: 2013Q3

REPORT INFORMATION
  Report Type: Spontaneous
  Country: DE (occurrence: DE)
  Receive Date: 20130820
  Receipt Date: 20130820
  Transmission Date: 20140515
  Serious: Yes (Life-Threatening)
  Sender: FDA-Public Use
  Company Number: DE-ACTAVIS-2013-14724

PATIENT
  Sex: 0

DRUGS (3)
  1. PANTOPRAZOLE SODIUM (UNKNOWN) [Suspect]
     Indication: PAIN MANAGEMENT
     Dosage: 40 MG, UNKNOWN
     Route: 048
     Dates: start: 20130717
  2. BISOPROLOL [Concomitant]
     Indication: HYPERTENSION
     Dosage: UNK, UNKNOWN
     Route: 065
  3. L-THYROXIN [Concomitant]
     Indication: HYPOTHYROIDISM
     Dosage: UNK, UNKNOWN
     Route: 065

REACTIONS (1)
  - Anaphylactic reaction [Recovering/Resolving]
